FAERS Safety Report 7784644-5 (Version None)
Quarter: 2011Q3

REPORT INFORMATION
  Report Type: 
  Country: None (occurrence: None)
  Receive Date: 20110928
  Receipt Date: 20110919
  Transmission Date: 20111222
  Serious: Yes (Hospitalization)
  Sender: FDA-Public Use
  Company Number: US-ASTRAZENECA-2011SE56349

PATIENT
  Age: 48 Year
  Sex: Female

DRUGS (1)
  1. TOPROL-XL [Suspect]
     Route: 048

REACTIONS (5)
  - FALL [None]
  - DIZZINESS [None]
  - BACK INJURY [None]
  - LIMB INJURY [None]
  - HEAD INJURY [None]
